FAERS Safety Report 6268213-4 (Version None)
Quarter: 2009Q3

REPORT INFORMATION
  Report Type: 
  Country: None (occurrence: None)
  Receive Date: 20090713
  Receipt Date: 20090713
  Transmission Date: 20100115
  Serious: Yes (Hospitalization)
  Sender: FDA-Public Use
  Company Number: None

PATIENT
  Sex: Male
  Weight: 71.2 kg

DRUGS (1)
  1. TAXOL [Suspect]
     Dosage: 324 MG

REACTIONS (8)
  - ANXIETY [None]
  - HAEMOPTYSIS [None]
  - HYPONATRAEMIA [None]
  - MENTAL STATUS CHANGES [None]
  - PANCYTOPENIA [None]
  - PNEUMONIA [None]
  - STENOTROPHOMONAS INFECTION [None]
  - TACHYCARDIA [None]
